FAERS Safety Report 9036233 (Version 1)
Quarter: 2013Q1

REPORT INFORMATION
  Report Type: Report from Study
  Country: US (occurrence: US)
  Receive Date: 20130129
  Receipt Date: 20130129
  Transmission Date: 20140127
  Serious: No
  Sender: FDA-Public Use
  Company Number: US-ABBOTT-12P-163-0920930-00

PATIENT
  Age: 61 Year
  Sex: Female

DRUGS (7)
  1. HUMIRA 40 MG/0.8 ML PEN [Suspect]
     Indication: PSORIASIS
     Dosage: LOADING DOSE
     Dates: start: 20120323
  2. HUMIRA 40 MG/0.8 ML PEN [Suspect]
     Indication: PSORIASIS
  3. HYDROCHLOROTHIAZIDE [Concomitant]
     Indication: SWELLING
     Dosage: 50 MG DAILY
  4. LISINOPRIL [Concomitant]
     Indication: HYPERTENSION
  5. METFORMIN [Concomitant]
     Indication: DIABETES MELLITUS
  6. SERTRALINE [Concomitant]
     Indication: DEPRESSION
  7. SERTRALINE [Concomitant]
     Indication: ANXIETY

REACTIONS (5)
  - Injection site bruising [Recovering/Resolving]
  - Contusion [Recovering/Resolving]
  - Injection site erythema [Recovering/Resolving]
  - Pyrexia [Unknown]
  - Chills [Unknown]
